FAERS Safety Report 9498902 (Version 1)
Quarter: 2013Q3

REPORT INFORMATION
  Report Type: Spontaneous
  Country: US (occurrence: None)
  Receive Date: 20130830
  Receipt Date: 20130830
  Transmission Date: 20140515
  Serious: Yes (Death, Hospitalization)
  Sender: FDA-Public Use
  Company Number: 2013-1348

PATIENT
  Age: 67 Year
  Sex: Male

DRUGS (8)
  1. KYPROLIS [Suspect]
     Indication: PLASMA CELL MYELOMA
     Dosage: (2 IN 1 WK), INTRAVENOUS
     Dates: start: 20130626, end: 20130716
  2. CALCITRIOL (CALCITRIOL) (CALCITRIOL) [Concomitant]
  3. ZOMETA (ZOLEDRONIC ACID) (ZOLEDRONIC ACID) [Concomitant]
  4. ACYCLOVIR (ACICLOVIR) (ACICLOVIR) [Concomitant]
  5. PREVACID (LANSOPRAZOLE) (LANSOPRAZOLE) [Concomitant]
  6. COUMADIN (WARFIN SODIUM) (WARFARIN SODIUM) [Concomitant]
  7. PERCOCET (PARACETAMOL, OXYCODONE HYDROCHLORIDE, OXYCODONE TEREPHTHALATE) (PARACETAMOL, OXYCODONE HYDROCHLORIDE, OXYCODONE TEREPHTHALATE) [Concomitant]
  8. OXYCONTIN (OXYCODONE HYDROCHLORIDE) (OXYCODONE HYDROCHLORIDE) [Concomitant]

REACTIONS (4)
  - Pneumonia [None]
  - Acute respiratory distress syndrome [None]
  - Hypotension [None]
  - Glomerular filtration rate decreased [None]
